FAERS Safety Report 6863069-0 (Version None)
Quarter: 2010Q3

REPORT INFORMATION
  Report Type: 
  Country: None (occurrence: None)
  Receive Date: 20100721
  Receipt Date: 20100713
  Transmission Date: 20110219
  Serious: Yes (Hospitalization)
  Sender: FDA-Public Use
  Company Number: JP-B.I. PHARMACEUTICALS,INC./RIDGEFIELD-2010-BP-08170YA

PATIENT
  Sex: Male

DRUGS (7)
  1. HARNAL (TAMSULOSIN) ORODISPERSABLE CR [Suspect]
     Dosage: 0.2 MG
     Route: 048
  2. TARGOCID [Suspect]
     Indication: POST PROCEDURAL INFECTION
     Dates: start: 20100706, end: 20100706
  3. ASPIRIN [Concomitant]
  4. LEVOFLOXACIN [Concomitant]
  5. ALLOPURINOL [Concomitant]
  6. ALDACTONE [Concomitant]
  7. ARICEPT [Concomitant]

REACTIONS (1)
  - CARDIO-RESPIRATORY ARREST [None]
